FAERS Safety Report 10166889 (Version 1)
Quarter: 2014Q2

REPORT INFORMATION
  Report Type: Spontaneous
  Country: US (occurrence: None)
  Receive Date: 20140509
  Receipt Date: 20140509
  Transmission Date: 20141212
  Serious: No
  Sender: FDA-Public Use
  Company Number: None

PATIENT
  Age: 47 Year
  Sex: Female
  Weight: 68.04 kg

DRUGS (1)
  1. ASTHMANEFRIN EZ BREATHE ATOMIZER [Suspect]
     Indication: BRONCHITIS
     Dosage: 1 AMPULE
     Dates: start: 20140507

REACTIONS (3)
  - Heart rate increased [None]
  - Dizziness [None]
  - Feeling jittery [None]
